FAERS Safety Report 6787999-3 (Version None)
Quarter: 2010Q2

REPORT INFORMATION
  Report Type: 
  Country: None (occurrence: None)
  Receive Date: 20100621
  Receipt Date: 20100609
  Transmission Date: 20101027
  Serious: Yes (Other)
  Sender: FDA-Public Use
  Company Number: GER/USA/10/0013422

PATIENT
  Age: 57 Year
  Sex: Female

DRUGS (2)
  1. SIMVASTATIN [Suspect]
     Indication: BLOOD CHOLESTEROL
     Dosage: 20 MG, 1 IN 1 D, ORAL
     Route: 048
     Dates: start: 20090101, end: 20100201
  2. ALENDRONATE SODIUM WATSON LABORATORIES (ALENDROATE SODIUM) [Suspect]
     Indication: OSTEOPOROSIS
     Dosage: ORAL
     Route: 048
     Dates: start: 20091101

REACTIONS (3)
  - AORTIC DISORDER [None]
  - HEPATITIS C [None]
  - SWELLING [None]
